FAERS Safety Report 4801113-2 (Version None)
Quarter: 2005Q4

REPORT INFORMATION
  Report Type: 
  Country: None (occurrence: None)
  Receive Date: 20051017
  Receipt Date: 20051005
  Transmission Date: 20060501
  Serious: Yes (Other)
  Sender: FDA-Public Use
  Company Number: 2005AP05224

PATIENT
  Age: 48 Year
  Sex: Female

DRUGS (2)
  1. NEXIUM [Suspect]
     Dosage: RECEIVING NEXIUM FOR 4-5 YEARS
     Route: 048
  2. ANTIBIOTICS [Concomitant]

REACTIONS (2)
  - CORNEAL DYSTROPHY [None]
  - OPTIC DISC DISORDER [None]
